FAERS Safety Report 5166892-6 (Version None)
Quarter: 2006Q4

REPORT INFORMATION
  Report Type: 
  Country: None (occurrence: None)
  Receive Date: 20061129
  Receipt Date: 20061116
  Transmission Date: 20070319
  Serious: Yes (Other)
  Sender: FDA-Public Use
  Company Number: 2006143329

PATIENT
  Age: 37 Year
  Sex: Female
  Weight: 50 kg

DRUGS (2)
  1. SUTENT [Suspect]
     Indication: RENAL CELL CARCINOMA STAGE UNSPECIFIED
     Dosage: 50 MG
     Dates: start: 20060501
  2. OMEPRAZOLE [Concomitant]

REACTIONS (4)
  - ACIDOSIS [None]
  - MUSCLE RIGIDITY [None]
  - PAIN IN EXTREMITY [None]
  - SKIN DISCOLOURATION [None]
